FAERS Safety Report 4993092-2 (Version None)
Quarter: 2006Q1

REPORT INFORMATION
  Report Type: 
  Country: None (occurrence: None)
  Receive Date: 20060313
  Receipt Date: 20051229
  Transmission Date: 20060701
  Serious: No
  Sender: FDA-Public Use
  Company Number: 2005-BP-21214BP

PATIENT
  Age: 36 Year
  Sex: Male
  Weight: 204.5 kg

DRUGS (6)
  1. SPIRIVA [Suspect]
     Dosage: (18 MCG),IH
  2. HYDROCHLOROTHIAZIDE [Concomitant]
  3. LISINOPRIL [Concomitant]
  4. VIAGRA [Concomitant]
  5. ZYRTEC [Concomitant]
  6. FLONASE [Concomitant]

REACTIONS (3)
  - BRONCHOSPASM [None]
  - DYSPNOEA [None]
  - THERAPEUTIC RESPONSE DECREASED [None]
